FAERS Safety Report 9144267 (Version 1)
Quarter: 2013Q1

REPORT INFORMATION
  Report Type: Spontaneous
  Country: US (occurrence: US)
  Receive Date: 20130306
  Receipt Date: 20130306
  Transmission Date: 20140127
  Serious: No
  Sender: FDA-Public Use
  Company Number: US-B.I. PHARMACEUTICALS,INC./RIDGEFIELD-2013-BI-05655BP

PATIENT
  Age: 67 Year
  Sex: Female

DRUGS (13)
  1. SPIRIVA [Suspect]
     Indication: BRONCHITIS CHRONIC
     Dosage: 18 MCG
     Route: 055
     Dates: start: 201208
  2. ZANTAC 150 (RANITIDINE HYDROCHLORIDE) [Suspect]
     Dosage: 300 MG
     Route: 048
     Dates: start: 201211
  3. VITAMIN B12 [Concomitant]
     Dosage: 47.619 MCG
     Route: 030
  4. PAXIL [Concomitant]
     Indication: DEPRESSION
     Dosage: 30 MG
     Route: 048
  5. VIVELLE [Concomitant]
     Route: 061
  6. ROYAL JELLY [Concomitant]
     Route: 048
  7. VITAMIN D [Concomitant]
     Route: 048
  8. ADVAIR DISKUS [Concomitant]
     Route: 055
  9. OMEGA 3 [Concomitant]
     Route: 048
  10. KLONOPIN [Concomitant]
     Indication: ANXIETY
     Dosage: 2 MG
     Route: 048
  11. ALLEGRA [Concomitant]
     Indication: SEASONAL ALLERGY
     Dosage: 180 MG
     Route: 048
  12. POTASSIUM [Concomitant]
     Dosage: 30 MEQ
     Route: 048
  13. MUCINEX [Concomitant]
     Dosage: 600 MG
     Route: 048

REACTIONS (6)
  - Feeling cold [Recovered/Resolved]
  - Fatigue [Not Recovered/Not Resolved]
  - Chest pain [Not Recovered/Not Resolved]
  - Product quality issue [Recovered/Resolved]
  - Product quality issue [Recovered/Resolved]
  - Product quality issue [Recovered/Resolved]
